FAERS Safety Report 21531548 (Version 1)
Quarter: 2022Q4

REPORT INFORMATION
  Report Type: Report from Study
  Country: CO (occurrence: CO)
  Receive Date: 20221031
  Receipt Date: 20221031
  Transmission Date: 20230113
  Serious: Yes (Hospitalization)
  Sender: FDA-Public Use
  Company Number: CO-ABBVIE-4181239

PATIENT
  Sex: Female
  Weight: 66 kg

DRUGS (1)
  1. HUMIRA [Suspect]
     Active Substance: ADALIMUMAB
     Indication: Colitis ulcerative
     Dosage: FORM STRENGTH: 40 MG
     Route: 058
     Dates: start: 20220310, end: 20221004

REACTIONS (6)
  - Haemorrhage [Recovering/Resolving]
  - Malaise [Recovering/Resolving]
  - Abdominal pain [Recovering/Resolving]
  - Pain [Recovering/Resolving]
  - Inflammation [Recovering/Resolving]
  - Discomfort [Unknown]

NARRATIVE: CASE EVENT DATE: 20220101
